FAERS Safety Report 18343644 (Version 1)
Quarter: 2020Q4

REPORT INFORMATION
  Report Type: Spontaneous
  Country: US (occurrence: US)
  Receive Date: 20201005
  Receipt Date: 20201005
  Transmission Date: 20210113
  Serious: No
  Sender: FDA-Public Use
  Company Number: US-PFIZER INC-2020380730

PATIENT
  Age: 77 Year
  Sex: Female
  Weight: 95.25 kg

DRUGS (2)
  1. IBRANCE [Suspect]
     Active Substance: PALBOCICLIB
     Indication: METASTATIC NEOPLASM
     Dosage: 75 MG, CYCLIC (FOR 3 WEEKS AND THEN OFF FOR 1 WEEK)
     Route: 048
  2. TAMOXIFEN [Concomitant]
     Active Substance: TAMOXIFEN
     Indication: METASTATIC NEOPLASM
     Dosage: 20 MG, 1X/DAY (20 MG ONCE DAILY IN THE EVENING)

REACTIONS (1)
  - Pain [Not Recovered/Not Resolved]
